FAERS Safety Report 4350872-4 (Version None)
Quarter: 2004Q2

REPORT INFORMATION
  Report Type: 
  Country: None (occurrence: None)
  Receive Date: 20040428
  Receipt Date: 20040415
  Transmission Date: 20050107
  Serious: Yes (Death)
  Sender: FDA-Public Use
  Company Number: 2003US005674

PATIENT
  Age: 47 Year
  Sex: Female
  Weight: 70.6 kg

DRUGS (6)
  1. PROGRAF [Suspect]
     Indication: RENAL TRANSPLANT
     Dosage: 5.00 MG, UID/QD, ORAL
     Route: 048
     Dates: start: 20020223, end: 20030718
  2. LIPITOR [Concomitant]
  3. PROTONIX [Concomitant]
  4. NEURONTIN [Concomitant]
  5. LANTUS [Concomitant]
  6. COZAAR [Concomitant]

REACTIONS (3)
  - HYPERCALCAEMIA [None]
  - POLYMYALGIA RHEUMATICA [None]
  - SEPSIS [None]
